FAERS Safety Report 7876064-X (Version None)
Quarter: 2011Q4

REPORT INFORMATION
  Report Type: 
  Country: None (occurrence: None)
  Receive Date: 20111031
  Receipt Date: 20111004
  Transmission Date: 20120403
  Serious: Yes (Hospitalization)
  Sender: FDA-Public Use
  Company Number: US-ROCHE-1007879

PATIENT

DRUGS (3)
  1. TOPOTECAN HYDROCHLORIDE [Suspect]
     Indication: CERVIX CARCINOMA RECURRENT
     Dosage: 30 MINUTES ON DAYS 1-3
     Route: 042
     Dates: start: 20110517
  2. AVASTIN [Suspect]
     Indication: CERVIX CARCINOMA RECURRENT
     Dosage: OVER 30 - 90 MINUTES ON DAY 1
     Route: 042
     Dates: start: 20110517
  3. PACLITAXEL [Suspect]
     Indication: CERVIX CARCINOMA RECURRENT
     Dosage: OVER 3 HOURS ON DAY 1
     Route: 042
     Dates: start: 20110517

REACTIONS (3)
  - ABDOMINAL PAIN [None]
  - URINARY TRACT OBSTRUCTION [None]
  - BLOOD CREATININE INCREASED [None]
